FAERS Safety Report 21599543 (Version 3)
Quarter: 2023Q1

REPORT INFORMATION
  Report Type: Spontaneous
  Country: JP (occurrence: JP)
  Receive Date: 20221115
  Receipt Date: 20230329
  Transmission Date: 20230418
  Serious: Yes (Hospitalization, Other)
  Sender: FDA-Public Use
  Company Number: JP-GSKJP-JP2022JPN163662

PATIENT
  Sex: Female
  Weight: 18 kg

DRUGS (3)
  1. BOTOX [Suspect]
     Active Substance: ONABOTULINUMTOXINA
     Indication: Muscle spasticity
     Dosage: 25 UNITS, SINGLE
  2. BOTOX [Suspect]
     Active Substance: ONABOTULINUMTOXINA
     Indication: Cerebral palsy
     Dosage: 50 UNITS, SINGLE
     Dates: start: 202211, end: 202211
  3. BOTOX [Suspect]
     Active Substance: ONABOTULINUMTOXINA
     Indication: Talipes

REACTIONS (7)
  - Epilepsy [Unknown]
  - Unresponsive to stimuli [Unknown]
  - Depressed level of consciousness [Unknown]
  - Vomiting [Unknown]
  - Seizure [Unknown]
  - Nystagmus [Recovered/Resolved]
  - Partial seizures [Unknown]

NARRATIVE: CASE EVENT DATE: 20221108
